FAERS Safety Report 20760586 (Version 3)
Quarter: 2022Q2

REPORT INFORMATION
  Report Type: Other
  Country: CA (occurrence: None)
  Receive Date: 20220428
  Receipt Date: 20220602
  Transmission Date: 20220721
  Serious: No
  Sender: FDA-Public Use
  Company Number: CA-ROCHE-3085373

PATIENT
  Age: 45 Year
  Sex: Male

DRUGS (7)
  1. OCREVUS [Suspect]
     Active Substance: OCRELIZUMAB
     Indication: Primary progressive multiple sclerosis
     Dosage: 300 MG AT DAY 0 AND 14, THEN 600 MG EVERY 6 MONTH
     Route: 042
     Dates: start: 20190426
  2. ATIVAN [Concomitant]
     Active Substance: LORAZEPAM
  3. TIZANIDINE [Concomitant]
     Active Substance: TIZANIDINE
  4. MYRBETRIQ [Concomitant]
     Active Substance: MIRABEGRON
  5. LAMOTRIGINE [Concomitant]
     Active Substance: LAMOTRIGINE
  6. ERGOCALCIFEROL [Concomitant]
     Active Substance: ERGOCALCIFEROL
  7. VITAMIN C [Concomitant]
     Active Substance: ASCORBIC ACID

REACTIONS (1)
  - COVID-19 [Unknown]

NARRATIVE: CASE EVENT DATE: 20220423
